FAERS Safety Report 6131138-9 (Version None)
Quarter: 2009Q1

REPORT INFORMATION
  Report Type: 
  Country: None (occurrence: None)
  Receive Date: 20090325
  Receipt Date: 20090324
  Transmission Date: 20090719
  Serious: Yes (Hospitalization)
  Sender: FDA-Public Use
  Company Number: US-PFIZER INC-2009172752

PATIENT
  Sex: Female
  Weight: 77.098 kg

DRUGS (1)
  1. NEURONTIN [Suspect]
     Indication: PAIN
     Dosage: UNK
     Dates: start: 20030101

REACTIONS (5)
  - ANGER [None]
  - DIZZINESS [None]
  - FALL [None]
  - INCONTINENCE [None]
  - WHITE BLOOD CELLS URINE POSITIVE [None]
